FAERS Safety Report 25982411 (Version 1)
Quarter: 2025Q4

REPORT INFORMATION
  Report Type: Report from Study
  Country: CA (occurrence: CA)
  Receive Date: 20251031
  Receipt Date: 20251031
  Transmission Date: 20260117
  Serious: Yes (Hospitalization)
  Sender: ABBVIE
  Company Number: CA-ABBVIE-6524497

PATIENT
  Age: 80 Year
  Sex: Female

DRUGS (1)
  1. HUMIRA [Suspect]
     Active Substance: ADALIMUMAB
     Indication: Crohn^s disease
     Dosage: FORM STRENGTH 40MG/0.8ML
     Route: 058

REACTIONS (5)
  - Oral disorder [Not Recovered/Not Resolved]
  - Dysphagia [Not Recovered/Not Resolved]
  - Oral mucosal discolouration [Unknown]
  - Odynophagia [Not Recovered/Not Resolved]
  - Oral papule [Unknown]

NARRATIVE: CASE EVENT DATE: 20251007
